FAERS Safety Report 16782808 (Version 4)
Quarter: 2020Q2

REPORT INFORMATION
  Report Type: Spontaneous
  Country: CA (occurrence: CA)
  Receive Date: 20190906
  Receipt Date: 20200624
  Transmission Date: 20200713
  Serious: Yes (Hospitalization)
  Sender: FDA-Public Use
  Company Number: CA-ACTELION-A-NJ2019-195083

PATIENT
  Age: 43 Year
  Sex: Female

DRUGS (20)
  1. METOLAZONE. [Concomitant]
     Active Substance: METOLAZONE
  2. TOPIRAMATE. [Concomitant]
     Active Substance: TOPIRAMATE
  3. SPIRONOLACTONE ALTIZIDE TEVA [Concomitant]
  4. LACTULOSE. [Concomitant]
     Active Substance: LACTULOSE
  5. BENZTROPINE. [Concomitant]
     Active Substance: BENZTROPINE
  6. OLANZAPINE. [Concomitant]
     Active Substance: OLANZAPINE
  7. FUROSEMIDE. [Concomitant]
     Active Substance: FUROSEMIDE
  8. LITHIUM. [Concomitant]
     Active Substance: LITHIUM
  9. JANUMET [Concomitant]
     Active Substance: METFORMIN HYDROCHLORIDE\SITAGLIPTIN PHOSPHATE
  10. DOCUSATE [Concomitant]
     Active Substance: DOCUSATE
  11. ROSUVASTATIN. [Concomitant]
     Active Substance: ROSUVASTATIN
  12. VENTOLIN [Concomitant]
     Active Substance: ALBUTEROL SULFATE
  13. OPSUMIT [Suspect]
     Active Substance: MACITENTAN
     Indication: PULMONARY ARTERIAL HYPERTENSION
     Dosage: 10 MG, QD
     Route: 048
     Dates: start: 20190724
  14. MAALOX ANTACID [Concomitant]
     Active Substance: ALUMINUM HYDROXIDE\DIMETHICONE\MAGNESIUM HYDROXIDE
  15. UREA C [Concomitant]
  16. MULTIVITAMIN [Concomitant]
     Active Substance: VITAMINS
  17. TADALAFIL. [Concomitant]
     Active Substance: TADALAFIL
  18. SALBUTAMOL [Concomitant]
     Active Substance: ALBUTEROL
  19. PANTOPRAZOLE [Concomitant]
     Active Substance: PANTOPRAZOLE
  20. ZUCLOPENTHIXOL [Concomitant]
     Active Substance: ZUCLOPENTHIXOL

REACTIONS (3)
  - Hospitalisation [Not Recovered/Not Resolved]
  - Product dose omission [Not Recovered/Not Resolved]
  - Echocardiogram [Unknown]

NARRATIVE: CASE EVENT DATE: 20190825
